FAERS Safety Report 4906721-6 (Version None)
Quarter: 2006Q1

REPORT INFORMATION
  Report Type: 
  Country: None (occurrence: None)
  Receive Date: 20060206
  Receipt Date: 20060124
  Transmission Date: 20060701
  Serious: Yes (Death)
  Sender: FDA-Public Use
  Company Number: 05H-163-0303143-00

PATIENT
  Age: 9 Day
  Sex: Male
  Weight: 3.7 kg

DRUGS (4)
  1. HEPARIN SODIUM [Suspect]
     Dosage: 2 U/ML, CONTINUOUS DRIP, INTRAVENOUS
     Route: 042
     Dates: start: 20050914, end: 20050917
  2. CALCIUM (CALCIUM) [Suspect]
     Indication: DRUG USE FOR UNKNOWN INDICATION
     Dates: start: 20050901, end: 20050901
  3. CALCIUM CHLORIDE [Suspect]
     Indication: BLOOD CALCIUM
     Dosage: 1000 MG, INTRAVENOUS
     Route: 042
     Dates: start: 20050915, end: 20050917
  4. PGE 1 (ALPROSTADIL) [Concomitant]

REACTIONS (14)
  - BLOOD PRESSURE FLUCTUATION [None]
  - BRADYCARDIA NEONATAL [None]
  - CAESAREAN SECTION [None]
  - CALCINOSIS [None]
  - CARDIAC ARREST NEONATAL [None]
  - CYANOSIS NEONATAL [None]
  - DRUG INTERACTION [None]
  - HEART DISEASE CONGENITAL [None]
  - METABOLIC ACIDOSIS [None]
  - NEONATAL DISORDER [None]
  - NEONATAL HYPOTENSION [None]
  - PULMONARY EMBOLISM [None]
  - TRANSPOSITION OF THE GREAT VESSELS [None]
  - VENTRICULAR FIBRILLATION [None]
